APPROVED DRUG PRODUCT: VISIPAQUE 270
Active Ingredient: IODIXANOL
Strength: 55%
Dosage Form/Route: INJECTABLE;INJECTION
Application: N020808 | Product #001
Applicant: GE HEALTHCARE
Approved: Aug 29, 1997 | RLD: No | RS: No | Type: DISCN